FAERS Safety Report 17647813 (Version 1)
Quarter: 2020Q2

REPORT INFORMATION
  Report Type: Spontaneous
  Country: US (occurrence: US)
  Receive Date: 20200408
  Receipt Date: 20200408
  Transmission Date: 20200713
  Serious: No
  Sender: FDA-Public Use
  Company Number: US-BIOGEN-2020BI00859084

PATIENT
  Sex: Female

DRUGS (1)
  1. PLEGRIDY [Suspect]
     Active Substance: PEGINTERFERON BETA-1A
     Indication: MULTIPLE SCLEROSIS
     Route: 058
     Dates: start: 20170112, end: 20170711

REACTIONS (3)
  - Multiple sclerosis relapse [Not Recovered/Not Resolved]
  - Influenza [Recovered/Resolved]
  - Seasonal allergy [Not Recovered/Not Resolved]
